FAERS Safety Report 6178145-8 (Version None)
Quarter: 2009Q2

REPORT INFORMATION
  Report Type: 
  Country: None (occurrence: None)
  Receive Date: 20090504
  Receipt Date: 20090428
  Transmission Date: 20091009
  Serious: Yes (Other)
  Sender: FDA-Public Use
  Company Number: US-ROXANE LABORATORIES, INC.-2009-RO-00411RO

PATIENT
  Age: 77 Year
  Sex: Male

DRUGS (4)
  1. GALANTAMINE HYDROBROMIDE [Suspect]
     Indication: DEMENTIA
     Dosage: 8MG
  2. SIMVASTATIN [Suspect]
     Dosage: 20MG
  3. TAMSULOSIN HCL [Suspect]
     Dosage: .4MG
  4. DONEPEZIL HCL [Concomitant]
     Indication: DEMENTIA

REACTIONS (2)
  - DEMENTIA [None]
  - NIGHTMARE [None]
